FAERS Safety Report 19352944 (Version 2)
Quarter: 2021Q2

REPORT INFORMATION
  Report Type: Spontaneous
  Country: JP (occurrence: JP)
  Receive Date: 20210601
  Receipt Date: 20210630
  Transmission Date: 20210717
  Serious: Yes (Death, Hospitalization, Other)
  Sender: FDA-Public Use
  Company Number: JP-SYNEX-T202102386

PATIENT
  Age: 27 Year
  Sex: Female

DRUGS (2)
  1. ENDOXAN [Concomitant]
     Active Substance: CYCLOPHOSPHAMIDE
     Indication: PULMONARY ARTERIAL HYPERTENSION
     Dosage: UNK
     Route: 065
  2. INOFLO [Suspect]
     Active Substance: NITRIC OXIDE
     Indication: PULMONARY HYPERTENSION
     Dosage: UNK (INHALATION)
     Route: 055

REACTIONS (7)
  - Hypoxia [Fatal]
  - Product use issue [Unknown]
  - Connective tissue disorder [Unknown]
  - Brain oedema [Fatal]
  - Multiple organ dysfunction syndrome [Fatal]
  - Pulmonary haemorrhage [Unknown]
  - Pulmonary hypertension [Unknown]
